FAERS Safety Report 7898978-7 (Version None)
Quarter: 2011Q4

REPORT INFORMATION
  Report Type: 
  Country: None (occurrence: None)
  Receive Date: 20111107
  Receipt Date: 20111021
  Transmission Date: 20120403
  Serious: Yes (Other)
  Sender: FDA-Public Use
  Company Number: PHHY2011AT93893

PATIENT
  Age: 76 Year
  Sex: Male
  Weight: 79 kg

DRUGS (10)
  1. MYCOPHENOLIC ACID [Suspect]
     Indication: RENAL TRANSPLANT
     Dosage: 1440 MG
     Route: 048
     Dates: start: 20110120, end: 20110516
  2. PREDNISOLONE [Suspect]
     Indication: RENAL TRANSPLANT
     Dosage: 15 MG
     Route: 048
     Dates: start: 20110121
  3. ASPIRIN [Concomitant]
     Indication: THROMBOSIS PROPHYLAXIS
     Dosage: 100 MG
     Route: 048
     Dates: start: 20110121
  4. TORSEMIDE [Concomitant]
     Indication: CORONARY ARTERY DISEASE
     Dosage: 20 MG
     Route: 048
     Dates: start: 20110222
  5. NEORAL [Suspect]
     Indication: RENAL TRANSPLANT
     Dosage: 200 MG
     Route: 048
     Dates: start: 20110201
  6. ZANTAC [Concomitant]
     Indication: GASTRIC DISORDER
     Dosage: 300 MG
     Route: 047
     Dates: start: 20110203
  7. HUMULIN 70/30 [Concomitant]
     Indication: TYPE 2 DIABETES MELLITUS
     Route: 058
  8. ROCALTROL [Concomitant]
     Indication: HYPERPARATHYROIDISM
     Dosage: 0.25 UG
     Route: 048
     Dates: start: 20110223, end: 20110516
  9. TAMSULOSIN HCL [Concomitant]
     Indication: BENIGN PROSTATIC HYPERPLASIA
     Dosage: 0.4 MG
     Route: 048
     Dates: start: 20110204, end: 20110501
  10. AMIODARONE HYDROCHLORIDE [Concomitant]
     Indication: CORONARY ARTERY DISEASE
     Dosage: 200 MG
     Route: 048
     Dates: start: 20110122

REACTIONS (8)
  - SEPSIS [None]
  - RENAL IMPAIRMENT [None]
  - CIRCULATORY COLLAPSE [None]
  - INFECTIOUS PERITONITIS [None]
  - KIDNEY TRANSPLANT REJECTION [None]
  - CYTOMEGALOVIRUS INFECTION [None]
  - LARGE INTESTINE PERFORATION [None]
  - DIVERTICULUM [None]
